FAERS Safety Report 10267299 (Version 1)
Quarter: 2014Q2

REPORT INFORMATION
  Report Type: Spontaneous
  Country: JP (occurrence: JP)
  Receive Date: 20140630
  Receipt Date: 20140630
  Transmission Date: 20141212
  Serious: Yes (Hospitalization)
  Sender: FDA-Public Use
  Company Number: PHHY2014JP080070

PATIENT
  Age: 72 Year
  Sex: Female

DRUGS (1)
  1. RASILEZ [Suspect]
     Dosage: 150 MG, DAILY
     Route: 048
     Dates: end: 20140613

REACTIONS (1)
  - Osteoarthritis [Unknown]
